FAERS Safety Report 14350129 (Version 1)
Quarter: 2018Q1

REPORT INFORMATION
  Report Type: Spontaneous
  Country: MX (occurrence: MX)
  Receive Date: 20180104
  Receipt Date: 20180104
  Transmission Date: 20180509
  Serious: Yes (Other)
  Sender: FDA-Public Use
  Company Number: MX-APOTEX-2017AP023739

PATIENT
  Sex: Male

DRUGS (4)
  1. ACYCLOVIR. [Suspect]
     Active Substance: ACYCLOVIR
     Indication: ANTIVIRAL PROPHYLAXIS
     Dosage: UNK
     Route: 064
  2. ACYCLOVIR. [Suspect]
     Active Substance: ACYCLOVIR
     Dosage: UNK
     Route: 042
  3. RIBAVIRIN. [Concomitant]
     Active Substance: RIBAVIRIN
     Indication: VARICELLA
     Route: 065
  4. ACYCLOVIR. [Suspect]
     Active Substance: ACYCLOVIR
     Dosage: UNK
     Route: 048

REACTIONS (4)
  - Neonatal hepatomegaly [Unknown]
  - Drug ineffective [Unknown]
  - Congenital varicella infection [Unknown]
  - Foetal exposure during pregnancy [Unknown]
